FAERS Safety Report 9000162 (Version 3)
Quarter: 2013Q1

REPORT INFORMATION
  Report Type: Report from Study
  Country: JP (occurrence: JP)
  Receive Date: 20130102
  Receipt Date: 20130318
  Transmission Date: 20140127
  Serious: Yes (Death, Life-Threatening, Hospitalization, Other)
  Sender: FDA-Public Use
  Company Number: JP-GENZYME-THYM-1003593

PATIENT
  Age: 53 Year
  Sex: Female
  Weight: 56 kg

DRUGS (28)
  1. THYMOGLOBULIN [Suspect]
     Indication: BONE MARROW CONDITIONING REGIMEN
     Dosage: 125 MG, QD
     Route: 065
     Dates: start: 20120730, end: 20120731
  2. FLUDARA [Suspect]
     Indication: BONE MARROW CONDITIONING REGIMEN
     Dosage: UNK
     Route: 065
     Dates: start: 20120726, end: 20120731
  3. FLUDARA [Suspect]
     Indication: NON-HODGKIN^S LYMPHOMA
  4. MELPHALAN [Suspect]
     Indication: NON-HODGKIN^S LYMPHOMA
     Dosage: UNK
     Route: 065
     Dates: start: 20120730, end: 20120731
  5. MELPHALAN [Suspect]
     Indication: BONE MARROW CONDITIONING REGIMEN
  6. TACROLIMUS [Suspect]
     Indication: PROPHYLAXIS AGAINST GRAFT VERSUS HOST DISEASE
     Dosage: UNK
     Route: 065
     Dates: start: 20120801, end: 20120818
  7. TOTAL BODY IRRADIATION [Suspect]
     Indication: BONE MARROW CONDITIONING REGIMEN
     Dosage: UNK
     Route: 065
     Dates: start: 20120801, end: 20120801
  8. METHOTREXATE [Suspect]
     Indication: PROPHYLAXIS AGAINST GRAFT VERSUS HOST DISEASE
     Dosage: UNK
     Route: 065
     Dates: start: 20120803, end: 20120808
  9. METHYLPREDNISOLONE SODIUM SUCCINATE [Suspect]
     Indication: ALLERGY PROPHYLAXIS
     Dosage: UNK
     Route: 065
     Dates: start: 20120730, end: 20120818
  10. METHYLPREDNISOLONE SODIUM SUCCINATE [Suspect]
     Indication: RENAL IMPAIRMENT
  11. GRANISETRON HYDROCHLORIDE [Concomitant]
     Indication: PROPHYLAXIS OF NAUSEA AND VOMITING
     Dosage: UNK
     Route: 065
     Dates: start: 20120726, end: 20120801
  12. FUROSEMIDE [Concomitant]
     Indication: PROPHYLAXIS
     Dosage: UNK
     Route: 065
     Dates: start: 20120730, end: 20120817
  13. FUROSEMIDE [Concomitant]
     Indication: PROPHYLAXIS
  14. HYDROCORTISONE SODIUM SUCCINATE [Concomitant]
     Indication: ALLERGY PROPHYLAXIS
     Dosage: UNK
     Route: 065
     Dates: start: 20120802, end: 20120802
  15. HYDROXYZINE PAMOATE [Concomitant]
     Indication: PROPHYLAXIS
     Dosage: UNK
     Route: 065
     Dates: start: 20120807, end: 20120814
  16. FAMOTIDINE [Concomitant]
     Indication: PROPHYLAXIS AGAINST GASTROINTESTINAL ULCER
     Dosage: UNK
     Route: 065
     Dates: start: 20120808, end: 20120818
  17. MEQUITAZINE [Concomitant]
     Indication: ALLERGY PROPHYLAXIS
     Dosage: UNK
     Route: 065
     Dates: start: 20120730, end: 20120731
  18. ACETAMINOPHEN [Concomitant]
     Indication: ALLERGY PROPHYLAXIS
     Dosage: UNK
     Route: 065
     Dates: start: 20120730, end: 20120731
  19. LEVOFLOXACIN [Concomitant]
     Indication: INFECTION PROPHYLAXIS
     Dosage: UNK
     Route: 065
     Dates: start: 20120726, end: 20120814
  20. ACICLOVIR [Concomitant]
     Indication: INFECTION PROPHYLAXIS
     Dosage: UNK
     Route: 065
     Dates: start: 20120726, end: 20120814
  21. ACICLOVIR [Concomitant]
     Indication: ANTIVIRAL PROPHYLAXIS
  22. ETHYL ICOSAPENTATE [Concomitant]
     Indication: HYPERLIPIDAEMIA
     Dosage: UNK
     Route: 065
  23. LEVOTHYROXINE SODIUM [Concomitant]
     Indication: HYPOTHYROIDISM
     Dosage: UNK
     Route: 065
  24. OMEPRAZOLE [Concomitant]
     Indication: PROPHYLAXIS AGAINST GASTROINTESTINAL ULCER
     Dosage: UNK
     Route: 065
     Dates: start: 20120801, end: 20120814
  25. REBAMIPIDE [Concomitant]
     Indication: PROPHYLAXIS AGAINST GASTROINTESTINAL ULCER
     Dosage: UNK
     Route: 065
     Dates: start: 20120726, end: 20120814
  26. LACTOMIN [Concomitant]
     Indication: PROPHYLAXIS
     Dosage: UNK
     Route: 065
     Dates: start: 20120726, end: 20120807
  27. SITAGLIPTIN PHOSPHATE [Concomitant]
     Indication: DIABETES MELLITUS
     Dosage: UNK
     Route: 065
  28. GLIMEPIRIDE [Concomitant]
     Indication: DIABETES MELLITUS
     Dosage: UNK
     Route: 065

REACTIONS (18)
  - Renal impairment [Fatal]
  - Circulatory collapse [Fatal]
  - Febrile neutropenia [Recovered/Resolved]
  - Neutrophil count decreased [Fatal]
  - Back pain [Fatal]
  - Dehydration [Unknown]
  - Mucous membrane disorder [Fatal]
  - Stomatitis [Fatal]
  - Vomiting [Recovered/Resolved]
  - Nausea [Recovered/Resolved]
  - Pyrexia [Recovered/Resolved]
  - Diarrhoea [Recovered/Resolved]
  - Genital candidiasis [Fatal]
  - Graft versus host disease [Fatal]
  - Diabetes mellitus [Recovered/Resolved]
  - Mallory-Weiss syndrome [Recovered/Resolved]
  - Hypomagnesaemia [Recovered/Resolved]
  - Rash [Fatal]
